FAERS Safety Report 10706571 (Version 1)
Quarter: 2015Q1

REPORT INFORMATION
  Report Type: Spontaneous
  Country: IT (occurrence: IT)
  Receive Date: 20150113
  Receipt Date: 20150113
  Transmission Date: 20150721
  Serious: Yes (Other)
  Sender: FDA-Public Use
  Company Number: IT-RANBAXY-2014RR-91550

PATIENT
  Age: 59 Year
  Sex: Female

DRUGS (6)
  1. NIMESULIDE [Suspect]
     Active Substance: NIMESULIDE
     Indication: PRODUCT USED FOR UNKNOWN INDICATION
     Dosage: 100 MG, UNK
     Route: 065
  2. ASPIRIN. [Suspect]
     Active Substance: ASPIRIN
     Indication: PRODUCT USED FOR UNKNOWN INDICATION
     Dosage: 500 MG, UNK
     Route: 065
  3. PIROXICAM. [Suspect]
     Active Substance: PIROXICAM
     Indication: PRODUCT USED FOR UNKNOWN INDICATION
     Dosage: 20 MG, UNK
     Route: 065
  4. PIROXICAM. [Suspect]
     Active Substance: PIROXICAM
     Indication: PRODUCT USED FOR UNKNOWN INDICATION
     Dosage: 20 MG, SINGLE
     Route: 065
  5. PARACETAMOL [Suspect]
     Active Substance: ACETAMINOPHEN
     Indication: ALLERGY TEST
     Dosage: 375 MG, UNK
     Route: 065
  6. FLOCTAFENINE [Suspect]
     Active Substance: FLOCTAFENINE
     Indication: ALLERGY TEST
     Dosage: 50 MG, UNK
     Route: 065

REACTIONS (3)
  - Drug hypersensitivity [Unknown]
  - Urticaria [Recovered/Resolved]
  - Angioedema [Recovered/Resolved]
